FAERS Safety Report 7282918-8 (Version None)
Quarter: 2011Q1

REPORT INFORMATION
  Report Type: 
  Country: None (occurrence: None)
  Receive Date: 20110209
  Receipt Date: 20101217
  Transmission Date: 20110831
  Serious: Yes (Hospitalization)
  Sender: FDA-Public Use
  Company Number: US-BAYER-200942479NA

PATIENT
  Sex: Female
  Weight: 128 kg

DRUGS (9)
  1. ZANTAC [Concomitant]
     Indication: DYSPEPSIA
     Dosage: 240 MG, UNK
  2. COREG [Concomitant]
     Indication: HYPERTENSION
     Dosage: 625 MG, UNK
  3. UNCODEABLE ^UNCLASSIFIABLE^ [Concomitant]
     Indication: ANTIBIOTIC THERAPY
  4. PHENERGAN [Concomitant]
     Indication: NAUSEA
     Dosage: UNK
  5. FLONASE [Concomitant]
     Indication: SINUSITIS
  6. LORTAB [Concomitant]
     Indication: PAIN
     Dosage: UNK
     Dates: start: 20061220
  7. YASMIN [Suspect]
     Indication: CONTRACEPTION
  8. BENICAR [Concomitant]
     Indication: HYPERTENSION
     Dosage: UNK
     Dates: start: 20061130
  9. UNCODEABLE ^UNCLASSIFIABLE^ [Concomitant]
     Indication: SINUSITIS

REACTIONS (9)
  - HYPERTENSION [None]
  - CHOLECYSTITIS [None]
  - CHOLESTEROSIS [None]
  - ANKLE FRACTURE [None]
  - DYSPEPSIA [None]
  - MUSCLE SPASMS [None]
  - ABDOMINAL PAIN UPPER [None]
  - JOINT DISLOCATION [None]
  - CHOLELITHIASIS [None]
